FAERS Safety Report 4383843-2 (Version None)
Quarter: 2004Q2

REPORT INFORMATION
  Report Type: 
  Country: None (occurrence: None)
  Receive Date: 20040615
  Receipt Date: 20030402
  Transmission Date: 20050107
  Serious: Yes (Hospitalization)
  Sender: FDA-Public Use
  Company Number: 2003US005193

PATIENT
  Age: 3 Year
  Sex: Male
  Weight: 15 kg

DRUGS (3)
  1. PROGRAF [Suspect]
     Indication: LIVER TRANSPLANT
     Dosage: 2.5 MG, UID/QD
  2. PREDNISONE TAB [Concomitant]
  3. PREVACID [Concomitant]

REACTIONS (1)
  - STATUS EPILEPTICUS [None]
